FAERS Safety Report 17110485 (Version 4)
Quarter: 2020Q3

REPORT INFORMATION
  Report Type: Spontaneous
  Country: US (occurrence: US)
  Receive Date: 20191204
  Receipt Date: 20200904
  Transmission Date: 20201102
  Serious: No
  Sender: FDA-Public Use
  Company Number: US-THERATECHNOLOGIES INC.-2019-THE-IBA-000041

PATIENT
  Sex: Male

DRUGS (12)
  1. TROGARZO [Suspect]
     Active Substance: IBALIZUMAB-UIYK
     Indication: HIV INFECTION
     Dosage: UNK
     Route: 042
     Dates: start: 20191029
  2. VALSARTAN. [Concomitant]
     Active Substance: VALSARTAN
     Indication: HYPERTENSION
  3. PREZCOBIX [Concomitant]
     Active Substance: COBICISTAT\DARUNAVIR ETHANOLATE
     Indication: HIV INFECTION
  4. BIKTARVY [Concomitant]
     Active Substance: BICTEGRAVIR SODIUM\EMTRICITABINE\TENOFOVIR ALAFENAMIDE FUMARATE
     Indication: HIV INFECTION
  5. AMLODIPINE [Concomitant]
     Active Substance: AMLODIPINE BESYLATE
     Indication: HYPERTENSION
     Dosage: 5 MG, UNK
  6. BABY ASPIRIN [Concomitant]
     Active Substance: ASPIRIN
     Indication: STENT PLACEMENT
  7. DESCOVY [Concomitant]
     Active Substance: EMTRICITABINE\TENOFOVIR ALAFENAMIDE FUMARATE
     Indication: PRODUCT USED FOR UNKNOWN INDICATION
     Dosage: UNK
  8. EZETIMIBE. [Concomitant]
     Active Substance: EZETIMIBE
     Indication: HYPERCHOLESTEROLAEMIA
  9. TROGARZO [Suspect]
     Active Substance: IBALIZUMAB-UIYK
     Dosage: UNK
     Route: 042
     Dates: start: 20191110
  10. PLAVIX [Concomitant]
     Active Substance: CLOPIDOGREL BISULFATE
     Indication: STENT PLACEMENT
  11. ATENOLOL. [Concomitant]
     Active Substance: ATENOLOL
  12. ROSUVASTATIN CALCIUM. [Concomitant]
     Active Substance: ROSUVASTATIN CALCIUM
     Indication: HYPERCHOLESTEROLAEMIA

REACTIONS (7)
  - Malaise [Unknown]
  - Rash [Unknown]
  - Therapeutic response unexpected [Unknown]
  - Paraesthesia [Unknown]
  - Flushing [Unknown]
  - Pain [Not Recovered/Not Resolved]
  - Myalgia [Recovered/Resolved]
